FAERS Safety Report 16104808 (Version 3)
Quarter: 2019Q2

REPORT INFORMATION
  Report Type: Spontaneous
  Country: JP (occurrence: JP)
  Receive Date: 20190322
  Receipt Date: 20190617
  Transmission Date: 20190711
  Serious: Yes (Death)
  Sender: FDA-Public Use
  Company Number: JP-ELI_LILLY_AND_COMPANY-JP201903009400

PATIENT
  Age: 73 Year
  Sex: Male
  Weight: 87 kg

DRUGS (13)
  1. CELECOX [Concomitant]
     Active Substance: CELECOXIB
     Indication: RHEUMATOID ARTHRITIS
     Dosage: 200 MG, DAILY
  2. NEXIUM [Concomitant]
     Active Substance: ESOMEPRAZOLE MAGNESIUM
     Indication: PROPHYLAXIS
  3. TRAMAL [Concomitant]
     Active Substance: TRAMADOL
  4. PREDNISOLONE. [Concomitant]
     Active Substance: PREDNISOLONE
     Indication: RHEUMATOID ARTHRITIS
     Dosage: 5 MG, DAILY
  5. DIOVAN [Concomitant]
     Active Substance: VALSARTAN
     Indication: HYPERTENSION
  6. LYRICA [Concomitant]
     Active Substance: PREGABALIN
  7. FLUITRAN [Concomitant]
     Active Substance: TRICHLORMETHIAZIDE
     Indication: HYPERTENSION
  8. EVOXAC [Concomitant]
     Active Substance: CEVIMELINE HYDROCHLORIDE
     Indication: SJOGREN^S SYNDROME
  9. MUCOSOLVAN [Concomitant]
     Active Substance: AMBROXOL HYDROCHLORIDE
     Indication: INTERSTITIAL LUNG DISEASE
  10. OLUMIANT [Suspect]
     Active Substance: BARICITINIB
     Indication: RHEUMATOID ARTHRITIS
     Dosage: 4 MG, DAILY
     Route: 048
     Dates: start: 20181211, end: 20190115
  11. ISCOTIN [Concomitant]
     Active Substance: ISONIAZID
     Indication: PROPHYLAXIS
  12. PYDOXAL [Concomitant]
     Active Substance: PYRIDOXAL
     Indication: PROPHYLAXIS
  13. COLCHICINE. [Concomitant]
     Active Substance: COLCHICINE
     Indication: CHONDROCALCINOSIS PYROPHOSPHATE

REACTIONS (1)
  - Interstitial lung disease [Fatal]

NARRATIVE: CASE EVENT DATE: 201901
